FAERS Safety Report 17810197 (Version 3)
Quarter: 2020Q2

REPORT INFORMATION
  Report Type: Report from Study
  Country: CN (occurrence: CN)
  Receive Date: 20200521
  Receipt Date: 20200612
  Transmission Date: 20200714
  Serious: Yes (Other)
  Sender: FDA-Public Use
  Company Number: CN-ROCHE-2059314

PATIENT
  Age: 43 Year
  Sex: Female
  Weight: 40 kg

DRUGS (2)
  1. AVASTIN [Suspect]
     Active Substance: BEVACIZUMAB
     Indication: RECTAL CANCER
     Route: 041
     Dates: start: 20160826, end: 20200115
  2. AVASTIN [Suspect]
     Active Substance: BEVACIZUMAB
     Route: 041

REACTIONS (7)
  - Diarrhoea [Unknown]
  - Neck pain [Unknown]
  - Dizziness [Unknown]
  - Brain neoplasm [Unknown]
  - Headache [Not Recovered/Not Resolved]
  - Metastases to central nervous system [Unknown]
  - Vomiting [Unknown]

NARRATIVE: CASE EVENT DATE: 202003
